FAERS Safety Report 9225898 (Version 1)
Quarter: 2013Q2

REPORT INFORMATION
  Report Type: Spontaneous
  Country: US (occurrence: US)
  Receive Date: 20130411
  Receipt Date: 20130411
  Transmission Date: 20140414
  Serious: No
  Sender: FDA-Public Use
  Company Number: JP-ASTELLAS-2012US003025

PATIENT
  Age: 49 Year
  Sex: Female

DRUGS (4)
  1. PROTOPIC [Suspect]
     Indication: ROSACEA
     Dosage: 0.03 %, UNKNOWN/D
     Route: 061
     Dates: start: 20120306, end: 20120309
  2. MINOCYCLINE [Concomitant]
     Indication: PRODUCT USED FOR UNKNOWN INDICATION
     Dosage: UNK
     Route: 065
  3. ENJUVIA [Concomitant]
     Indication: PRODUCT USED FOR UNKNOWN INDICATION
     Dosage: UNK
     Route: 065
  4. BABY ASPIRIN [Concomitant]
     Indication: PRODUCT USED FOR UNKNOWN INDICATION
     Dosage: UNK
     Route: 065

REACTIONS (7)
  - Off label use [Unknown]
  - Application site mass [Recovered/Resolved]
  - Application site scar [Recovering/Resolving]
  - Haematoma [Unknown]
  - Application site swelling [Recovering/Resolving]
  - Application site erythema [Recovering/Resolving]
  - Application site reaction [Recovered/Resolved]
